FAERS Safety Report 12303494 (Version 5)
Quarter: 2020Q1

REPORT INFORMATION
  Report Type: Spontaneous
  Country: US (occurrence: US)
  Receive Date: 20160426
  Receipt Date: 20200212
  Transmission Date: 20200409
  Serious: No
  Sender: FDA-Public Use
  Company Number: US-JNJFOC-20160411771

PATIENT
  Age: 6 Year
  Sex: Male

DRUGS (5)
  1. RISPERDAL [Suspect]
     Active Substance: RISPERIDONE
     Indication: DYSPHEMIA
     Route: 048
     Dates: end: 20050929
  2. RISPERIDONE. [Suspect]
     Active Substance: RISPERIDONE
     Indication: DYSPHEMIA
  3. RISPERDAL [Suspect]
     Active Substance: RISPERIDONE
     Indication: TIC
     Dosage: VARYING DOSES  OF 0.25 MG AND 0.5 MG
     Route: 048
     Dates: start: 20010322, end: 20050829
  4. RISPERDAL [Suspect]
     Active Substance: RISPERIDONE
     Indication: IRRITABILITY
  5. RISPERIDONE. [Suspect]
     Active Substance: RISPERIDONE
     Indication: TIC
     Route: 065
     Dates: start: 20050110, end: 20050207

REACTIONS (4)
  - Emotional distress [Unknown]
  - Off label use [Unknown]
  - Product use in unapproved indication [Unknown]
  - Gynaecomastia [Unknown]

NARRATIVE: CASE EVENT DATE: 20010322
